FAERS Safety Report 12366086 (Version 1)
Quarter: 2016Q2

REPORT INFORMATION
  Report Type: Other
  Country: US (occurrence: US)
  Receive Date: 20160513
  Receipt Date: 20160513
  Transmission Date: 20160815
  Serious: Yes (Hospitalization)
  Sender: FDA-Public Use
  Company Number: US-HLSUS-2016-US-000215

PATIENT
  Age: 26 Year
  Sex: Female

DRUGS (4)
  1. DOXYCYCLINE. [Concomitant]
     Active Substance: DOXYCYCLINE
  2. VANCOMYCIN [Concomitant]
     Active Substance: VANCOMYCIN
  3. CEFUROXIME. [Concomitant]
     Active Substance: CEFUROXIME
  4. CLOZAPINE. [Suspect]
     Active Substance: CLOZAPINE
     Indication: SCHIZOPHRENIA
     Dosage: 300 MG QHS

REACTIONS (10)
  - Antipsychotic drug level increased [Unknown]
  - Lung consolidation [None]
  - Dizziness [None]
  - Pneumonia necrotising [Recovering/Resolving]
  - Lung abscess [Unknown]
  - Toxicity to various agents [Unknown]
  - Fatigue [None]
  - Somnolence [None]
  - Salivary hypersecretion [Recovering/Resolving]
  - Staphylococcus test positive [None]
